FAERS Safety Report 10423752 (Version 1)
Quarter: 2014Q3

REPORT INFORMATION
  Report Type: Spontaneous
  Country: US (occurrence: None)
  Receive Date: 20140725
  Receipt Date: 20140725
  Transmission Date: 20150326
  Serious: Yes (Hospitalization)
  Sender: FDA-Public Use
  Company Number: AP356-00656-SPO-US

PATIENT
  Age: 38 Year
  Sex: Male

DRUGS (3)
  1. BELVIQ [Suspect]
     Active Substance: LORCASERIN HYDROCHLORIDE
     Indication: WEIGHT DECREASED
     Route: 048
     Dates: start: 201312, end: 201312
  2. PROTONIX (PANTOPRAZOLE SODIUM) [Concomitant]
  3. CLONIDINE. [Concomitant]
     Active Substance: CLONIDINE

REACTIONS (2)
  - Anaemia [None]
  - Neutropenia [None]

NARRATIVE: CASE EVENT DATE: 201401
